FAERS Safety Report 5846570-8 (Version None)
Quarter: 2008Q3

REPORT INFORMATION
  Report Type: 
  Country: None (occurrence: None)
  Receive Date: 20080815
  Receipt Date: 20080814
  Transmission Date: 20090109
  Serious: Yes (Other)
  Sender: FDA-Public Use
  Company Number: A0742111A

PATIENT
  Age: 70 Year
  Sex: Female
  Weight: 70 kg

DRUGS (7)
  1. ALLI [Suspect]
     Indication: WEIGHT LOSS DIET
     Route: 048
     Dates: start: 20080802, end: 20080806
  2. METOPROLOL [Concomitant]
  3. LYRICA [Concomitant]
  4. TEMAZEPAM [Concomitant]
  5. LASIX [Concomitant]
  6. PROTONIX [Concomitant]
  7. VITAMIN B-12 [Concomitant]

REACTIONS (6)
  - BLOOD PRESSURE INCREASED [None]
  - FREQUENT BOWEL MOVEMENTS [None]
  - NAUSEA [None]
  - PROCTALGIA [None]
  - RECTAL HAEMORRHAGE [None]
  - WEIGHT INCREASED [None]
